FAERS Safety Report 4912189-6 (Version None)
Quarter: 2006Q1

REPORT INFORMATION
  Report Type: 
  Country: None (occurrence: None)
  Receive Date: 20060215
  Receipt Date: 20050915
  Transmission Date: 20060701
  Serious: No
  Sender: FDA-Public Use
  Company Number: US-GLAXOSMITHKLINE-A0574413A

PATIENT
  Age: 77 Year
  Sex: Male

DRUGS (9)
  1. VALTREX [Suspect]
     Dosage: 1G THREE TIMES PER DAY
     Route: 048
     Dates: start: 20050914
  2. PROSCAR [Concomitant]
  3. PROTONIX [Concomitant]
  4. ALTACE [Concomitant]
  5. ATENOLOL [Concomitant]
  6. VYTORIN [Concomitant]
  7. PLAVIX [Concomitant]
  8. VITAMIN [Concomitant]
  9. ASPIRIN [Concomitant]

REACTIONS (1)
  - HAEMATOCHEZIA [None]
